FAERS Safety Report 18454017 (Version 2)
Quarter: 2020Q4

REPORT INFORMATION
  Report Type: Spontaneous
  Country: RO (occurrence: RO)
  Receive Date: 20201102
  Receipt Date: 20201218
  Transmission Date: 20210114
  Serious: Yes (Death, Hospitalization)
  Sender: FDA-Public Use
  Company Number: RO-ASTRAZENECA-2020SF42658

PATIENT
  Age: 23388 Day
  Sex: Male

DRUGS (1)
  1. FASENRA [Suspect]
     Active Substance: BENRALIZUMAB
     Indication: ASTHMA
     Route: 058
     Dates: start: 20201005, end: 20201028

REACTIONS (9)
  - COVID-19 pneumonia [Unknown]
  - Asthma [Unknown]
  - Pneumonia [Unknown]
  - Ischaemic cardiomyopathy [Unknown]
  - Acute respiratory failure [Unknown]
  - COVID-19 [Fatal]
  - Bronchiectasis [Unknown]
  - Type 2 diabetes mellitus [Unknown]
  - Essential hypertension [Unknown]

NARRATIVE: CASE EVENT DATE: 20201028
